FAERS Safety Report 7132823-2 (Version None)
Quarter: 2010Q4

REPORT INFORMATION
  Report Type: 
  Country: None (occurrence: None)
  Receive Date: 20101202
  Receipt Date: 20101126
  Transmission Date: 20110411
  Serious: No
  Sender: FDA-Public Use
  Company Number: US-PFIZER INC-2010158453

PATIENT
  Sex: Male
  Weight: 73 kg

DRUGS (8)
  1. TOVIAZ [Suspect]
     Indication: POLLAKIURIA
     Dosage: UNK
     Route: 048
     Dates: start: 20101101
  2. TOVIAZ [Suspect]
     Indication: HYPERTONIC BLADDER
  3. METFORMIN [Concomitant]
     Dosage: UNK
     Route: 048
  4. GABAPENTIN [Concomitant]
     Dosage: UNK
     Route: 048
  5. WELLBUTRIN [Concomitant]
     Dosage: UNK
     Route: 048
  6. PROZAC [Concomitant]
     Dosage: UNK
     Route: 048
  7. FENOFIBRATE [Concomitant]
     Dosage: UNK
     Route: 048
  8. LORAZEPAM [Concomitant]
     Indication: NERVOUSNESS
     Dosage: UNK
     Route: 048

REACTIONS (1)
  - NOCTURIA [None]
